FAERS Safety Report 7392154-2 (Version None)
Quarter: 2011Q2

REPORT INFORMATION
  Report Type: 
  Country: None (occurrence: None)
  Receive Date: 20110404
  Receipt Date: 20110328
  Transmission Date: 20111010
  Serious: Yes (Other)
  Sender: FDA-Public Use
  Company Number: A0920794A

PATIENT

DRUGS (1)
  1. AVANDIA [Suspect]
     Dates: start: 20040101

REACTIONS (2)
  - CEREBROVASCULAR ACCIDENT [None]
  - CARDIAC DISORDER [None]
